FAERS Safety Report 11131722 (Version 3)
Quarter: 2015Q2

REPORT INFORMATION
  Report Type: Spontaneous
  Country: DE (occurrence: None)
  Receive Date: 20150520
  Receipt Date: 20150629
  Transmission Date: 20150821
  Serious: Yes (Hospitalization)
  Sender: FDA-Public Use
  Company Number: KAD201505-001208

PATIENT
  Age: 76 Year
  Sex: Female
  Weight: 68 kg

DRUGS (11)
  1. RIBAVIRIN. [Suspect]
     Active Substance: RIBAVIRIN
     Indication: HEPATITIS C
     Route: 048
     Dates: start: 20150319, end: 20150402
  2. AMLODIPINE [Concomitant]
     Active Substance: AMLODIPINE BESYLATE
  3. TRIAMTERENE (TRIAMTERENE) [Concomitant]
     Active Substance: TRIAMTERENE
  4. VIEKIRAX (OMBITASVIR, PARITAPREVIR, RITONAVIR) [Suspect]
     Active Substance: OMBITASVIR\PARITAPREVIR\RITONAVIR
     Indication: HEPATITIS C
     Route: 048
     Dates: start: 20150319, end: 20150402
  5. EXVIERA (DASABUVIR) [Suspect]
     Active Substance: DASABUVIR
     Indication: HEPATITIS C
     Route: 048
     Dates: start: 20150319, end: 20150329
  6. RIBAVIRIN. [Suspect]
     Active Substance: RIBAVIRIN
     Indication: HEPATIC CIRRHOSIS
     Route: 048
     Dates: start: 20150319, end: 20150402
  7. VIEKIRAX (OMBITASVIR, PARITAPREVIR, RITONAVIR) [Suspect]
     Active Substance: OMBITASVIR\PARITAPREVIR\RITONAVIR
     Indication: HEPATIC CIRRHOSIS
     Route: 048
     Dates: start: 20150319, end: 20150402
  8. EXVIERA (DASABUVIR) [Suspect]
     Active Substance: DASABUVIR
     Indication: HEPATIC CIRRHOSIS
     Route: 048
     Dates: start: 20150319, end: 20150329
  9. JODTHYROX (LEVOTHYROXINE SODIUM, POTASSIUM IODIDE) [Concomitant]
  10. RAMIPRIL (RAMIPRIL) [Concomitant]
     Active Substance: RAMIPRIL
  11. NORSPAN (BUPRENORPHINE) [Concomitant]

REACTIONS (8)
  - Dyspepsia [None]
  - Pruritus [None]
  - Blood bilirubin increased [None]
  - Blood alkaline phosphatase increased [None]
  - Aspartate aminotransferase increased [None]
  - General physical health deterioration [None]
  - Jaundice [None]
  - Alanine aminotransferase increased [None]

NARRATIVE: CASE EVENT DATE: 20150330
